FAERS Safety Report 15436370 (Version 2)
Quarter: 2019Q1

REPORT INFORMATION
  Report Type: Spontaneous
  Country: US (occurrence: US)
  Receive Date: 20180927
  Receipt Date: 20190228
  Transmission Date: 20190417
  Serious: No
  Sender: FDA-Public Use
  Company Number: US-PFIZER INC-2018384830

PATIENT
  Age: 12 Year
  Sex: Female
  Weight: 25 kg

DRUGS (1)
  1. GENOTROPIN [Suspect]
     Active Substance: SOMATROPIN
     Indication: GROWTH RETARDATION
     Dosage: 1.2 MG, DAILY
     Dates: start: 20180411

REACTIONS (3)
  - Blood calcium abnormal [Unknown]
  - Arthralgia [Unknown]
  - Osteitis condensans [Not Recovered/Not Resolved]

NARRATIVE: CASE EVENT DATE: 201902
